FAERS Safety Report 6138707-0 (Version None)
Quarter: 2009Q1

REPORT INFORMATION
  Report Type: 
  Country: None (occurrence: None)
  Receive Date: 20090331
  Receipt Date: 20090320
  Transmission Date: 20090719
  Serious: Yes (Other)
  Sender: FDA-Public Use
  Company Number: US-BAXTER-2009BH004509

PATIENT
  Sex: Female

DRUGS (2)
  1. ROBINUL [Suspect]
     Indication: APTYALISM
     Route: 065
  2. PROPOFOL [Concomitant]
     Indication: SEDATION
     Route: 065

REACTIONS (10)
  - ANXIETY [None]
  - CHEST PAIN [None]
  - DRUG TOXICITY [None]
  - DYSPHORIA [None]
  - HYPERTENSION [None]
  - MENTAL STATUS CHANGES [None]
  - NAUSEA [None]
  - PANIC ATTACK [None]
  - TACHYCARDIA [None]
  - VOMITING [None]
